FAERS Safety Report 18664908 (Version 2)
Quarter: 2021Q1

REPORT INFORMATION
  Report Type: Report from Study
  Country: US (occurrence: US)
  Receive Date: 20201225
  Receipt Date: 20210217
  Transmission Date: 20210419
  Serious: Yes (Hospitalization)
  Sender: FDA-Public Use
  Company Number: US-TAKEDA-US201945033

PATIENT
  Sex: Male

DRUGS (2)
  1. IDURSULFASE [Suspect]
     Active Substance: IDURSULFASE
     Indication: MUCOPOLYSACCHARIDOSIS II
     Dosage: UNK UNK, 1/WEEK
     Route: 042
     Dates: start: 20090420
  2. IDURSULFASE [Suspect]
     Active Substance: IDURSULFASE
     Dosage: UNK, 1/WEEK
     Route: 042
     Dates: start: 20200401

REACTIONS (2)
  - Surgery [Unknown]
  - SARS-CoV-2 test positive [Recovered/Resolved]
